FAERS Safety Report 16589741 (Version 1)
Quarter: 2019Q3

REPORT INFORMATION
  Report Type: Report from Study
  Country: None (occurrence: US)
  Receive Date: 20190718
  Receipt Date: 20190718
  Transmission Date: 20191004
  Serious: Yes (Other)
  Sender: FDA-Public Use
  Company Number: US-SWEDISH ORPHAN BIOVITRUM-2019US0808

PATIENT
  Age: 4 Year
  Sex: Female
  Weight: 15.7 kg

DRUGS (15)
  1. KINERET [Suspect]
     Active Substance: ANAKINRA
     Route: 058
     Dates: start: 20140604
  2. KINERET [Suspect]
     Active Substance: ANAKINRA
     Route: 058
     Dates: start: 20140511
  3. KINERET [Suspect]
     Active Substance: ANAKINRA
     Route: 058
     Dates: start: 20141030
  4. KINERET [Suspect]
     Active Substance: ANAKINRA
     Route: 058
     Dates: start: 20140516
  5. KINERET [Suspect]
     Active Substance: ANAKINRA
     Route: 058
     Dates: start: 20140526
  6. PREDNISOLONE. [Concomitant]
     Active Substance: PREDNISOLONE
     Dates: start: 20140501, end: 20140717
  7. KINERET [Suspect]
     Active Substance: ANAKINRA
     Route: 058
     Dates: start: 20140804
  8. KINERET [Suspect]
     Active Substance: ANAKINRA
     Route: 058
     Dates: start: 20170724
  9. KINERET [Suspect]
     Active Substance: ANAKINRA
     Indication: DEFICIENCY OF THE INTERLEUKIN-1 RECEPTOR ANTAGONIST
     Dosage: 3.0 MG/KG/DAY, QD
     Route: 058
     Dates: start: 20140501
  10. KINERET [Suspect]
     Active Substance: ANAKINRA
     Route: 058
     Dates: start: 20150629
  11. VITAMIN B COMPLEX [Concomitant]
     Active Substance: CYANOCOBALAMIN\DEXPANTHENOL\NIACINAMIDE\PYRIDOXINE HYDROCHLORIDE\RIBOFLAVIN 5^-PHOSPHATE SODIUM\THIAMINE HYDROCHLORIDE\VITAMIN B COMPLEX
     Route: 048
     Dates: start: 20180407
  12. KINERET [Suspect]
     Active Substance: ANAKINRA
     Route: 058
     Dates: start: 20140530
  13. KINERET [Suspect]
     Active Substance: ANAKINRA
     Route: 058
     Dates: start: 20140717
  14. MULTIVITAMIN [Concomitant]
     Active Substance: VITAMINS
     Route: 048
     Dates: start: 20170524
  15. KINERET [Suspect]
     Active Substance: ANAKINRA
     Route: 058
     Dates: start: 20180607

REACTIONS (3)
  - Upper respiratory tract infection [Recovered/Resolved]
  - Gastroenteritis [Recovered/Resolved]
  - Tooth abscess [Recovered/Resolved]

NARRATIVE: CASE EVENT DATE: 20180115
